FAERS Safety Report 15732510 (Version 1)
Quarter: 2018Q4

REPORT INFORMATION
  Report Type: Spontaneous
  Country: US (occurrence: US)
  Receive Date: 20181217
  Receipt Date: 20181217
  Transmission Date: 20190205
  Serious: No
  Sender: FDA-Public Use
  Company Number: US-VIFOR (INTERNATIONAL) INC.-VIT-2018-11055

PATIENT
  Sex: Male

DRUGS (15)
  1. PREDNISONE. [Concomitant]
     Active Substance: PREDNISONE
  2. NOVOLOG [Concomitant]
     Active Substance: INSULIN ASPART
  3. LANTUS SOLOSTAR [Concomitant]
     Active Substance: INSULIN GLARGINE
  4. FERROCITE [Concomitant]
     Active Substance: FERROUS FUMARATE
  5. ACYCLOVIR. [Concomitant]
     Active Substance: ACYCLOVIR
  6. FISH OIL BURP-LESS [Concomitant]
  7. ASPIR-81 [Concomitant]
     Active Substance: ASPIRIN
  8. SULFAMETHOXAZOLE-TRIMETHOPRIM [Concomitant]
     Active Substance: SULFAMETHOXAZOLE\TRIMETHOPRIM
  9. ATORVASTATIN CALCIUM. [Concomitant]
     Active Substance: ATORVASTATIN CALCIUM
  10. VELTASSA [Suspect]
     Active Substance: PATIROMER
     Indication: HYPERKALAEMIA
     Route: 048
     Dates: start: 20170620, end: 2017
  11. SLOW-MAG [Concomitant]
     Active Substance: MAGNESIUM CHLORIDE
  12. PHOSPHA 250 [Concomitant]
  13. TACROLIMUS. [Concomitant]
     Active Substance: TACROLIMUS
  14. MYCOPHENOLATE MOFETIL. [Concomitant]
     Active Substance: MYCOPHENOLATE MOFETIL
  15. NEUTRAL [Concomitant]

REACTIONS (1)
  - Blood potassium decreased [Unknown]

NARRATIVE: CASE EVENT DATE: 2017
